FAERS Safety Report 19710620 (Version 3)
Quarter: 2021Q3

REPORT INFORMATION
  Report Type: Spontaneous
  Country: US (occurrence: US)
  Receive Date: 20210817
  Receipt Date: 20210922
  Transmission Date: 20211014
  Serious: Yes (Hospitalization)
  Sender: FDA-Public Use
  Company Number: US-PFIZER INC-202100998883

PATIENT
  Age: 80 Year
  Sex: Male

DRUGS (2)
  1. INLYTA [Suspect]
     Active Substance: AXITINIB
     Dosage: 5 MG
     Dates: start: 20210730
  2. NICARDIPINE [Suspect]
     Active Substance: NICARDIPINE
     Indication: BLOOD PRESSURE MANAGEMENT
     Dosage: UNK

REACTIONS (3)
  - Weight decreased [Unknown]
  - Fluid retention [Unknown]
  - Fall [Unknown]

NARRATIVE: CASE EVENT DATE: 2021
